FAERS Safety Report 10012635 (Version 2)
Quarter: 2014Q2

REPORT INFORMATION
  Report Type: Spontaneous
  Country: US (occurrence: US)
  Receive Date: 20140314
  Receipt Date: 20140401
  Transmission Date: 20141212
  Serious: Yes (Hospitalization)
  Sender: FDA-Public Use
  Company Number: US-AMGEN-USASP2014017290

PATIENT
  Age: 87 Year
  Sex: Female
  Weight: 83.9 kg

DRUGS (13)
  1. PROLIA [Suspect]
     Indication: OSTEOPOROSIS POSTMENOPAUSAL
     Dosage: 60 MG, Q6MO
     Route: 065
     Dates: start: 20140108
  2. PREDNISONE [Concomitant]
     Indication: RHEUMATOID ARTHRITIS
     Dosage: 5 MG, QD
     Route: 065
     Dates: start: 2000
  3. LOSARTAN [Concomitant]
     Dosage: UNK
     Route: 065
  4. SOTALOL [Concomitant]
     Indication: ATRIAL FIBRILLATION
     Dosage: 40 MG, BID
     Route: 065
  5. XOPENEX [Concomitant]
     Dosage: UNK UNK, BID
     Route: 065
  6. NEXIUM                             /01479302/ [Concomitant]
     Route: 065
  7. ASPIRIN [Concomitant]
     Dosage: 325 MG, UNK
     Route: 065
  8. DIGOXIN [Concomitant]
     Dosage: 0.25 MG, UNK
     Route: 065
  9. POTASSIUM [Concomitant]
     Route: 065
  10. GLIMEPIRIDE [Concomitant]
     Route: 065
  11. NASOCORT [Concomitant]
     Route: 065
  12. ZOCOR [Concomitant]
     Route: 065
  13. VITAMIN D                          /00107901/ [Concomitant]
     Dosage: 1000 UNK, BID
     Route: 065

REACTIONS (19)
  - Blood pressure abnormal [Unknown]
  - Urinary tract infection [Unknown]
  - Malaise [Not Recovered/Not Resolved]
  - Diarrhoea [Recovered/Resolved]
  - Spinal pain [Recovering/Resolving]
  - Dizziness [Not Recovered/Not Resolved]
  - Tremor [Not Recovered/Not Resolved]
  - Cold sweat [Not Recovered/Not Resolved]
  - Presyncope [Not Recovered/Not Resolved]
  - Feeling abnormal [Unknown]
  - Hypoaesthesia [Unknown]
  - Dyspnoea [Unknown]
  - Pollakiuria [Unknown]
  - Urinary incontinence [Unknown]
  - Insomnia [Unknown]
  - Abdominal pain upper [Recovered/Resolved]
  - Asthenia [Not Recovered/Not Resolved]
  - Back pain [Unknown]
  - Pain in extremity [Recovering/Resolving]
